FAERS Safety Report 5223549-0 (Version None)
Quarter: 2007Q1

REPORT INFORMATION
  Report Type: 
  Country: None (occurrence: None)
  Receive Date: 20070125
  Receipt Date: 20070109
  Transmission Date: 20070707
  Serious: Yes (Hospitalization)
  Sender: FDA-Public Use
  Company Number: 20063352

PATIENT
  Sex: Male

DRUGS (3)
  1. LIORESAL [Suspect]
     Indication: MUSCLE SPASTICITY
     Dosage: 243; DECREASED TO 190 MCG,D
  2. ORAL BACLOFEN [Concomitant]
  3. CLONIDINE [Concomitant]

REACTIONS (7)
  - CATHETER RELATED COMPLICATION [None]
  - DEVICE BREAKAGE [None]
  - DRUG WITHDRAWAL SYNDROME [None]
  - DYSTONIA [None]
  - MUSCLE SPASTICITY [None]
  - PRIAPISM [None]
  - PRURITUS GENERALISED [None]
